FAERS Safety Report 7958227-8 (Version None)
Quarter: 2011Q4

REPORT INFORMATION
  Report Type: 
  Country: None (occurrence: None)
  Receive Date: 20111205
  Receipt Date: 20111129
  Transmission Date: 20120403
  Serious: Yes (Life-Threatening, Hospitalization, Other)
  Sender: FDA-Public Use
  Company Number: JP-ROCHE-783306

PATIENT
  Sex: Female
  Weight: 46 kg

DRUGS (10)
  1. METHOTREXATE [Suspect]
     Indication: RHEUMATOID ARTHRITIS
     Dosage: NOTE: DOSAGE IS UNCERTAIN.
     Route: 048
     Dates: start: 20100420, end: 20110609
  2. URSO 250 [Concomitant]
     Dosage: DOSAGE FORM: PERORAL AGENT
     Route: 048
     Dates: start: 20100420, end: 20110528
  3. LANSOPRAZOLE [Concomitant]
     Route: 048
     Dates: start: 20100420, end: 20110528
  4. FERROUS CITRATE [Concomitant]
     Route: 048
     Dates: start: 20110420, end: 20110528
  5. LENDORMIN D [Concomitant]
     Route: 048
     Dates: start: 20100420, end: 20110528
  6. ACTEMRA [Suspect]
     Indication: RHEUMATOID ARTHRITIS
     Dosage: NOTE: DOSAGE IS UNCERTAIN
     Route: 041
     Dates: start: 20100109, end: 20110528
  7. CELECOXIB [Concomitant]
     Indication: RHEUMATOID ARTHRITIS
     Route: 048
     Dates: start: 20100420, end: 20110528
  8. FOLIC ACID [Concomitant]
     Route: 048
     Dates: start: 20100420, end: 20110528
  9. VFEND [Concomitant]
     Route: 048
     Dates: start: 20100420, end: 20110528
  10. PREDNISOLONE [Suspect]
     Indication: RHEUMATOID ARTHRITIS
     Dosage: NOTE: DOSAGE IS UNCERTAIN.
     Route: 048
     Dates: start: 20100420, end: 20110528

REACTIONS (5)
  - SEPTIC SHOCK [None]
  - RHEUMATOID LUNG [None]
  - PNEUMONIA [None]
  - SEPSIS [None]
  - UPPER RESPIRATORY TRACT INFLAMMATION [None]
